FAERS Safety Report 5004144-5 (Version None)
Quarter: 2006Q2

REPORT INFORMATION
  Report Type: 
  Country: None (occurrence: None)
  Receive Date: 20060517
  Receipt Date: 20060320
  Transmission Date: 20061013
  Serious: Yes (Life-Threatening, Hospitalization)
  Sender: FDA-Public Use
  Company Number: 2006PK00564

PATIENT
  Age: 17960 Day
  Sex: Male
  Weight: 90 kg

DRUGS (3)
  1. SEROQUEL [Suspect]
     Dosage: 10 TABLETS
     Route: 048
  2. STILNOX [Suspect]
     Dosage: 10 TABLETS
     Route: 048
  3. TAVOR [Suspect]
     Dosage: 40 TABLETS
     Route: 048

REACTIONS (7)
  - DIALYSIS [None]
  - DRUG TOXICITY [None]
  - MULTIPLE DRUG OVERDOSE [None]
  - OESOPHAGITIS ULCERATIVE [None]
  - RENAL FAILURE ACUTE [None]
  - SUICIDE ATTEMPT [None]
  - TOXIC EPIDERMAL NECROLYSIS [None]
